FAERS Safety Report 7910704-1 (Version None)
Quarter: 2011Q4

REPORT INFORMATION
  Report Type: 
  Country: None (occurrence: None)
  Receive Date: 20111111
  Receipt Date: 20111107
  Transmission Date: 20120403
  Serious: Yes (Life-Threatening)
  Sender: FDA-Public Use
  Company Number: CA-ASTRAZENECA-2011SE67285

PATIENT
  Age: 61 Year
  Sex: Female
  Weight: 77.1 kg

DRUGS (2)
  1. CRESTOR [Suspect]
     Route: 048
  2. MONITAN [Concomitant]

REACTIONS (9)
  - ASTHENIA [None]
  - ARTHRALGIA [None]
  - GAIT DISTURBANCE [None]
  - HYPOKINESIA [None]
  - PAIN [None]
  - DYSPNOEA [None]
  - BONE PAIN [None]
  - GINGIVAL PAIN [None]
  - MYALGIA [None]
